FAERS Safety Report 12474478 (Version 1)
Quarter: 2016Q2

REPORT INFORMATION
  Report Type: Spontaneous
  Country: US (occurrence: None)
  Receive Date: 20160616
  Receipt Date: 20160616
  Transmission Date: 20160815
  Serious: No
  Sender: FDA-Public Use
  Company Number: None

PATIENT
  Age: 66 Year
  Sex: Male
  Weight: 99.1 kg

DRUGS (1)
  1. OMBITASVIR/PARITAPREVIR/RITONAVIR [Suspect]
     Active Substance: OMBITASVIR\PARITAPREVIR\RITONAVIR
     Indication: HEPATITIS C
     Dates: start: 20150925, end: 20151004

REACTIONS (4)
  - Escherichia urinary tract infection [None]
  - Dysuria [None]
  - Malaise [None]
  - Abdominal pain [None]

NARRATIVE: CASE EVENT DATE: 20151004
